FAERS Safety Report 11736764 (Version 1)
Quarter: 2015Q4

REPORT INFORMATION
  Report Type: Spontaneous
  Country: US (occurrence: None)
  Receive Date: 20151112
  Receipt Date: 20151112
  Transmission Date: 20160304
  Serious: Yes (Other)
  Sender: FDA-Public Use
  Company Number: None

PATIENT
  Age: 33 Year
  Sex: Male
  Weight: 77.11 kg

DRUGS (2)
  1. RANITIDINE [Concomitant]
     Active Substance: RANITIDINE\RANITIDINE HYDROCHLORIDE
  2. CIPROFLOXACIN. [Suspect]
     Active Substance: CIPROFLOXACIN
     Indication: PROSTATITIS
     Route: 048
     Dates: start: 20150529, end: 20150602

REACTIONS (8)
  - Back pain [None]
  - Neuropathy peripheral [None]
  - Spider vein [None]
  - Feeling abnormal [None]
  - Arthralgia [None]
  - Muscle spasms [None]
  - Tinnitus [None]
  - Pruritus [None]

NARRATIVE: CASE EVENT DATE: 20150602
